FAERS Safety Report 8891447 (Version 2)
Quarter: 2013Q1

REPORT INFORMATION
  Report Type: Spontaneous
  Country: US (occurrence: None)
  Receive Date: 20121031
  Receipt Date: 20130114
  Transmission Date: 20140127
  Serious: Yes (Other)
  Sender: FDA-Public Use
  Company Number: AE12-062

PATIENT
  Age: 83 Year
  Sex: Female

DRUGS (5)
  1. LORCET [Suspect]
     Indication: PAIN
     Dosage: 1 TABLET
     Dates: start: 2001, end: 2007
  2. SYNTHYROID [Concomitant]
  3. LASIX [Concomitant]
  4. PREDNISONE [Concomitant]
  5. NEXIUM [Suspect]
     Indication: HIATUS HERNIA
     Dosage: 2 TABLETS EVERY 4 HRS

REACTIONS (7)
  - Fall [None]
  - Rotator cuff syndrome [None]
  - Rib fracture [None]
  - Upper limb fracture [None]
  - Decreased appetite [None]
  - Weight decreased [None]
  - Foot fracture [None]
